FAERS Safety Report 19252135 (Version 1)
Quarter: 2021Q2

REPORT INFORMATION
  Report Type: Spontaneous
  Country: US (occurrence: US)
  Receive Date: 20210513
  Receipt Date: 20210513
  Transmission Date: 20210717
  Serious: No
  Sender: FDA-Public Use
  Company Number: US-BAYER-2021-140245

PATIENT
  Age: 81 Year
  Sex: Female

DRUGS (2)
  1. GAS?X [Concomitant]
     Active Substance: DIMETHICONE
     Route: 048
  2. MIRALAX [Suspect]
     Active Substance: POLYETHYLENE GLYCOL 3350
     Dosage: 1 PACKET IN A GLASS OF WATER
     Route: 048
     Dates: start: 20210506, end: 20210506

REACTIONS (2)
  - Abdominal pain upper [Unknown]
  - Flatulence [Unknown]

NARRATIVE: CASE EVENT DATE: 20210506
